FAERS Safety Report 18485685 (Version 1)
Quarter: 2020Q4

REPORT INFORMATION
  Report Type: Spontaneous
  Country: JP (occurrence: JP)
  Receive Date: 20201110
  Receipt Date: 20201110
  Transmission Date: 20210114
  Serious: Yes (Other)
  Sender: FDA-Public Use
  Company Number: JP-PBT-000412

PATIENT
  Age: 39 Year

DRUGS (3)
  1. WARFARIN [Suspect]
     Active Substance: WARFARIN
     Indication: CORONARY ARTERY OCCLUSION
     Route: 065
  2. PRASUGREL. [Suspect]
     Active Substance: PRASUGREL
     Indication: PRODUCT USED FOR UNKNOWN INDICATION
     Route: 065
  3. ACETYLSALICYLIC ACID [Suspect]
     Active Substance: ASPIRIN
     Indication: PRODUCT USED FOR UNKNOWN INDICATION
     Route: 065

REACTIONS (1)
  - Behcet^s syndrome [Unknown]
